FAERS Safety Report 15777947 (Version 1)
Quarter: 2018Q4

REPORT INFORMATION
  Report Type: Spontaneous
  Country: RU (occurrence: RU)
  Receive Date: 20181231
  Receipt Date: 20181231
  Transmission Date: 20190205
  Serious: Yes (Other)
  Sender: FDA-Public Use
  Company Number: RU-BAYER-2018-243256

PATIENT
  Age: 61 Year
  Sex: Female

DRUGS (2)
  1. ANGELIQ [Suspect]
     Active Substance: DROSPIRENONE\ESTRADIOL
     Indication: MENOPAUSAL SYMPTOMS
     Dosage: 1 DF, QD
     Route: 048
     Dates: start: 2016, end: 2018
  2. ANGELIQ [Suspect]
     Active Substance: DROSPIRENONE\ESTRADIOL
     Indication: MENOPAUSAL SYMPTOMS
     Dosage: 1 DF, QD
     Route: 048
     Dates: start: 2006, end: 2016

REACTIONS (2)
  - Hot flush [None]
  - Type 1 diabetes mellitus [None]

NARRATIVE: CASE EVENT DATE: 2018
